FAERS Safety Report 7478148-7 (Version None)
Quarter: 2011Q2

REPORT INFORMATION
  Report Type: 
  Country: None (occurrence: None)
  Receive Date: 20110513
  Receipt Date: 20110506
  Transmission Date: 20111010
  Serious: Yes (Other)
  Sender: FDA-Public Use
  Company Number: FR-ASTRAZENECA-2010SE19147

PATIENT
  Age: 23012 Day
  Sex: Female

DRUGS (9)
  1. ARIMIDEX [Suspect]
     Indication: BREAST CANCER
     Dosage: DAILY
     Route: 048
     Dates: start: 20080818
  2. TANAKAN [Concomitant]
  3. FUROSEMIDE [Concomitant]
  4. SPIRONOLACTONE [Concomitant]
     Route: 048
  5. PROPOFAN [Concomitant]
     Dosage: ONE PER DAY
  6. PERINDOPRIL ERBUMINE [Concomitant]
     Route: 048
  7. TRIMETAZIDINE [Concomitant]
     Dosage: TWO PER DAY
  8. NEBIVOLOL [Concomitant]
     Route: 048
  9. KETOMOPANE [Concomitant]
     Dosage: AS REQUIRED

REACTIONS (2)
  - VISION BLURRED [None]
  - TRANSIENT ISCHAEMIC ATTACK [None]
